FAERS Safety Report 9318292 (Version 1)
Quarter: 2013Q2

REPORT INFORMATION
  Report Type: Spontaneous
  Country: US (occurrence: US)
  Receive Date: 20130530
  Receipt Date: 20130530
  Transmission Date: 20140414
  Serious: No
  Sender: FDA-Public Use
  Company Number: US-NOVEN-12US005741

PATIENT
  Age: 6 Year
  Sex: Male
  Weight: 27.21 kg

DRUGS (3)
  1. DAYTRANA [Suspect]
     Indication: ATTENTION DEFICIT/HYPERACTIVITY DISORDER
     Dosage: 10 MG, UNK
     Route: 062
     Dates: start: 201211
  2. SINGULAIR [Concomitant]
     Indication: ASTHMA
     Dosage: 4 MG, QD
     Route: 048
  3. ALBUTEROL [Concomitant]
     Indication: ASTHMA
     Dosage: 1 VIAL QD

REACTIONS (2)
  - Headache [Not Recovered/Not Resolved]
  - Decreased appetite [Not Recovered/Not Resolved]
